FAERS Safety Report 25064319 (Version 1)
Quarter: 2025Q1

REPORT INFORMATION
  Report Type: Spontaneous
  Country: US (occurrence: US)
  Receive Date: 20250311
  Receipt Date: 20250311
  Transmission Date: 20250409
  Serious: Yes (Other)
  Sender: RECKITT BENCKISER
  Company Number: US-INDIVIOR US-INDV-159475-2025

PATIENT
  Age: 17 Year
  Sex: Male

DRUGS (6)
  1. SUBLOCADE [Suspect]
     Active Substance: BUPRENORPHINE
     Indication: Drug use disorder
     Dosage: 300 MILLIGRAM, QMO
     Route: 065
  2. SUBLOCADE [Suspect]
     Active Substance: BUPRENORPHINE
     Dosage: 300 MILLIGRAM, QMO
     Route: 065
  3. BUPRENORPHINE\NALOXONE [Suspect]
     Active Substance: BUPRENORPHINE\NALOXONE
     Indication: Drug use disorder
     Dosage: UNK, QD
     Route: 060
  4. FENTANYL [Suspect]
     Active Substance: FENTANYL
     Indication: Product used for unknown indication
  5. FENTANYL [Suspect]
     Active Substance: FENTANYL
     Route: 045
  6. FENTANYL [Suspect]
     Active Substance: FENTANYL
     Route: 065

REACTIONS (5)
  - Haematemesis [Unknown]
  - Off label use [Not Recovered/Not Resolved]
  - Drug withdrawal syndrome [Unknown]
  - Drug abuse [Not Recovered/Not Resolved]
  - Treatment noncompliance [Recovered/Resolved]
